FAERS Safety Report 25229000 (Version 2)
Quarter: 2025Q2

REPORT INFORMATION
  Report Type: Report from Study
  Country: US (occurrence: US)
  Receive Date: 20250423
  Receipt Date: 20250508
  Transmission Date: 20250717
  Serious: Yes (Other)
  Sender: UCB
  Company Number: US-UCBSA-2024056068

PATIENT
  Age: 12 Year
  Sex: Male
  Weight: 60.7 kg

DRUGS (10)
  1. FINTEPLA [Suspect]
     Active Substance: FENFLURAMINE
     Indication: Severe myoclonic epilepsy of infancy
     Dosage: 22 MILLIGRAM/DAY, 0.6 MG/KG/DAY
     Dates: start: 20210409
  2. FINTEPLA [Suspect]
     Active Substance: FENFLURAMINE
     Indication: Lennox-Gastaut syndrome
     Dosage: 22 MILLIGRAM/DAY
     Dates: start: 20210414
  3. FINTEPLA [Suspect]
     Active Substance: FENFLURAMINE
     Dates: start: 20211004
  4. FINTEPLA [Suspect]
     Active Substance: FENFLURAMINE
  5. FINTEPLA [Suspect]
     Active Substance: FENFLURAMINE
     Dates: start: 2023
  6. FINTEPLA [Suspect]
     Active Substance: FENFLURAMINE
     Dosage: 4.5 MILLILITER, 2X/DAY (BID)
  7. FINTEPLA [Suspect]
     Active Substance: FENFLURAMINE
  8. FINTEPLA [Suspect]
     Active Substance: FENFLURAMINE
  9. CANNABIDIOL [Concomitant]
     Active Substance: CANNABIDIOL
     Indication: Lennox-Gastaut syndrome
     Route: 048
     Dates: start: 202108
  10. CLOBAZAM [Concomitant]
     Active Substance: CLOBAZAM
     Indication: Lennox-Gastaut syndrome
     Route: 048
     Dates: start: 201909

REACTIONS (4)
  - Left ventricular enlargement [Unknown]
  - Left ventricular dysfunction [Not Recovered/Not Resolved]
  - Abdominal pain upper [Not Recovered/Not Resolved]
  - Product use issue [Unknown]

NARRATIVE: CASE EVENT DATE: 20240930
